FAERS Safety Report 10146033 (Version 2)
Quarter: 2018Q1

REPORT INFORMATION
  Report Type: Spontaneous
  Country: IN (occurrence: IN)
  Receive Date: 20140501
  Receipt Date: 20180109
  Transmission Date: 20180508
  Serious: Yes (Life-Threatening, Other)
  Sender: FDA-Public Use
  Company Number: IN-MYLANLABS-2014S1009361

PATIENT
  Age: 33 Year
  Sex: Female

DRUGS (1)
  1. PHENYTOIN. [Suspect]
     Active Substance: PHENYTOIN
     Indication: PRODUCT USED FOR UNKNOWN INDICATION
     Dosage: CONSUMPTION OF 15 TABLETS (100MG)
     Route: 048

REACTIONS (5)
  - Seizure [Recovered/Resolved]
  - Suicide attempt [Recovered/Resolved]
  - Gangrene [Unknown]
  - Intentional overdose [Recovered/Resolved]
  - Loss of consciousness [Unknown]
